FAERS Safety Report 8245162 (Version 6)
Quarter: 2013Q4

REPORT INFORMATION
  Report Type: Spontaneous
  Country: US (occurrence: US)
  Receive Date: 20111115
  Receipt Date: 20131001
  Transmission Date: 20140711
  Serious: Yes (Other)
  Sender: FDA-Public Use
  Company Number: US-ROCHE-1012758

PATIENT
  Age: 24 Year
  Sex: Male
  Weight: 60.84 kg

DRUGS (1)
  1. ACCUTANE [Suspect]
     Indication: ACNE
     Dosage: 2 IN THE MORNING AND 1 IN NIGHT
     Route: 048
     Dates: start: 20020424, end: 20021115

REACTIONS (12)
  - Colitis ulcerative [Unknown]
  - Inflammatory bowel disease [Unknown]
  - Depression [Unknown]
  - Injury [Unknown]
  - Intestinal haemorrhage [Unknown]
  - Headache [Unknown]
  - Lip dry [Unknown]
  - Fatigue [Unknown]
  - Rash [Unknown]
  - Dry skin [Unknown]
  - Arthralgia [Unknown]
  - Nasal dryness [Unknown]
